FAERS Safety Report 7571394-3 (Version None)
Quarter: 2011Q2

REPORT INFORMATION
  Report Type: 
  Country: None (occurrence: None)
  Receive Date: 20110624
  Receipt Date: 20110620
  Transmission Date: 20111010
  Serious: Yes (Other)
  Sender: FDA-Public Use
  Company Number: US-SANOFI-AVENTIS-2011SA031162

PATIENT
  Age: 68 Year
  Sex: Male
  Weight: 86.18 kg

DRUGS (12)
  1. ZOCOR [Concomitant]
  2. AMLODIPINE [Concomitant]
  3. EYE DROPS [Concomitant]
  4. BENICAR [Concomitant]
  5. ALL OTHER THERAPEUTIC PRODUCTS [Concomitant]
  6. FLOMAX [Concomitant]
  7. LISINOPRIL [Concomitant]
  8. LANTUS [Suspect]
     Dosage: DOSE:50 UNIT(S)
     Route: 058
     Dates: end: 20110101
  9. IMDUR [Concomitant]
  10. PLAVIX [Concomitant]
  11. LANTUS [Suspect]
     Dosage: AT 10 PM DOSE:26 UNIT(S)
     Route: 058
     Dates: start: 20110101
  12. SOLOSTAR [Suspect]
     Dates: end: 20110528

REACTIONS (4)
  - BLOOD GLUCOSE INCREASED [None]
  - CATARACT [None]
  - RETINAL TEAR [None]
  - VISUAL ACUITY REDUCED [None]
